FAERS Safety Report 6980450-X (Version None)
Quarter: 2010Q3

REPORT INFORMATION
  Report Type: 
  Country: None (occurrence: None)
  Receive Date: 20100914
  Receipt Date: 20100831
  Transmission Date: 20110219
  Serious: Yes (Other)
  Sender: FDA-Public Use
  Company Number: US-BAYER-201027137NA

PATIENT
  Age: 35 Year
  Sex: Male
  Weight: 88 kg

DRUGS (2)
  1. ULTRAVIST 300 [Suspect]
     Indication: COMPUTERISED TOMOGRAM ABDOMEN
     Dosage: AS USED: 100 ML  UNIT DOSE: 500 ML
     Route: 042
     Dates: start: 20100513, end: 20100513
  2. CIALIS [Concomitant]
     Dosage: TOTAL DAILY DOSE: 2.5 MG

REACTIONS (6)
  - DRY EYE [None]
  - EYE PRURITUS [None]
  - NASAL DISCOMFORT [None]
  - OCULAR HYPERAEMIA [None]
  - SNEEZING [None]
  - URTICARIA [None]
